FAERS Safety Report 5010754-1 (Version None)
Quarter: 2006Q2

REPORT INFORMATION
  Report Type: 
  Country: None (occurrence: None)
  Receive Date: 20060524
  Receipt Date: 20060524
  Transmission Date: 20061013
  Serious: Yes (Hospitalization)
  Sender: FDA-Public Use
  Company Number: None

PATIENT
  Sex: Female
  Weight: 98.8842 kg

DRUGS (9)
  1. TEMOZOLOMIDE SCHERING [Suspect]
     Indication: METASTATIC MALIGNANT MELANOMA
     Dosage: 315 MG QD X 7 QO WK PO
     Route: 048
     Dates: start: 20060426, end: 20060502
  2. TEMOZOLOMIDE SCHERING [Suspect]
     Indication: METASTATIC MALIGNANT MELANOMA
     Dosage: 315 MG QD X 7 QO WK PO
     Route: 048
     Dates: start: 20060510, end: 20060515
  3. SUNITINIB L-MALATE SALT PFIZER [Suspect]
     Indication: METASTATIC MALIGNANT MELANOMA
     Dosage: 25 MG D 8-28, Q 28 D PO
     Route: 048
     Dates: start: 20060503, end: 20060521
  4. SKELAX [Concomitant]
  5. DIOVAN [Concomitant]
  6. INDAPIMIDE [Concomitant]
  7. CLARINEX [Concomitant]
  8. MOBIC [Concomitant]
  9. NEXIUM [Concomitant]

REACTIONS (5)
  - BLOOD CREATININE INCREASED [None]
  - DIARRHOEA [None]
  - MOUTH ULCERATION [None]
  - NAUSEA [None]
  - PLATELET COUNT DECREASED [None]
